FAERS Safety Report 7414857-3 (Version None)
Quarter: 2011Q1

REPORT INFORMATION
  Report Type: 
  Country: None (occurrence: None)
  Receive Date: 20110302
  Receipt Date: 20101222
  Transmission Date: 20110831
  Serious: No
  Sender: FDA-Public Use
  Company Number: 024328

PATIENT
  Sex: Female
  Weight: 86.2 kg

DRUGS (2)
  1. CIMZIA [Suspect]
     Indication: RHEUMATOID ARTHRITIS
     Dosage: (200 MG 1X/2 WEEKS SUBCUTANEOUS)
     Route: 058
     Dates: start: 20100101
  2. METHOTREXATE [Concomitant]

REACTIONS (3)
  - EYE INFECTION CHLAMYDIAL [None]
  - ORAL HERPES [None]
  - INFLUENZA LIKE ILLNESS [None]
